FAERS Safety Report 16577567 (Version 3)
Quarter: 2019Q3

REPORT INFORMATION
  Report Type: Spontaneous
  Country: US (occurrence: US)
  Receive Date: 20190716
  Receipt Date: 20190801
  Transmission Date: 20191004
  Serious: No
  Sender: FDA-Public Use
  Company Number: US-GLAXOSMITHKLINE-US2019127061

PATIENT
  Age: 29 Year
  Sex: Female

DRUGS (1)
  1. ABREVA [Suspect]
     Active Substance: DOCOSANOL
     Indication: ORAL HERPES
     Dosage: 12 TIMES A DAY
     Route: 061

REACTIONS (5)
  - Inappropriate schedule of product administration [Unknown]
  - Product complaint [Unknown]
  - Product use issue [Unknown]
  - Oral herpes [Unknown]
  - Condition aggravated [Unknown]
